FAERS Safety Report 9724778 (Version 1)
Quarter: 2013Q4

REPORT INFORMATION
  Report Type: Spontaneous
  Country: FR (occurrence: FR)
  Receive Date: 20131202
  Receipt Date: 20131202
  Transmission Date: 20140711
  Serious: Yes (Hospitalization)
  Sender: FDA-Public Use
  Company Number: FR-ASTRAZENECA-2013SE71521

PATIENT
  Age: 25760 Day
  Sex: Female

DRUGS (11)
  1. TENORMINE [Suspect]
     Indication: HYPERTENSION
     Dosage: 100 MG DAILY, LONG LASTING TREATMENT
     Route: 048
     Dates: end: 20120713
  2. COTAREG [Concomitant]
     Dosage: 160 MG VALSARTAN /25 MG HYDROCHLOROTHIAZIDE
  3. LEVOTHYROX [Concomitant]
  4. KARDEGIC [Concomitant]
  5. AMLOR [Concomitant]
  6. GLUCOPHAGE [Concomitant]
  7. LAMALINE [Concomitant]
  8. OMEPRAZOLE [Concomitant]
  9. VOLTARENE [Concomitant]
  10. TRANSULOSE [Concomitant]
  11. CALCIDOSE D3 [Concomitant]

REACTIONS (3)
  - Asthma [Recovered/Resolved]
  - Headache [Unknown]
  - Vomiting [Unknown]
